APPROVED DRUG PRODUCT: ETOPOSIDE
Active Ingredient: ETOPOSIDE
Strength: 20MG/ML
Dosage Form/Route: INJECTABLE;INJECTION
Application: A074227 | Product #001
Applicant: PHARMACHEMIE BV
Approved: Feb 22, 1996 | RLD: No | RS: No | Type: DISCN